FAERS Safety Report 12377624 (Version 1)
Quarter: 2016Q2

REPORT INFORMATION
  Report Type: Spontaneous
  Country: US (occurrence: US)
  Receive Date: 20160517
  Receipt Date: 20160517
  Transmission Date: 20160815
  Serious: No
  Sender: FDA-Public Use
  Company Number: US-JNJFOC-20160504954

PATIENT
  Age: 7 Year
  Sex: Male

DRUGS (2)
  1. CHILDRENS MOTRIN COLD [Suspect]
     Active Substance: IBUPROFEN\PSEUDOEPHEDRINE HYDROCHLORIDE
     Route: 048
  2. CHILDRENS MOTRIN COLD [Suspect]
     Active Substance: IBUPROFEN\PSEUDOEPHEDRINE HYDROCHLORIDE
     Indication: PYREXIA
     Dosage: 2 DOSES THE NIGHT BEFORE AND 2 DOSES TODAY.
     Route: 048

REACTIONS (1)
  - Incorrect dose administered [Unknown]
